FAERS Safety Report 11906675 (Version 2)
Quarter: 2016Q1

REPORT INFORMATION
  Report Type: Spontaneous
  Country: IN (occurrence: IN)
  Receive Date: 20160111
  Receipt Date: 20160112
  Transmission Date: 20160526
  Serious: Yes (Death, Hospitalization)
  Sender: FDA-Public Use
  Company Number: IN-PFIZER INC-2015476279

PATIENT
  Age: 45 Year
  Sex: Male

DRUGS (1)
  1. CRIZALK [Suspect]
     Active Substance: CRIZOTINIB
     Dosage: 250 MG, 2X/DAY
     Route: 048
     Dates: start: 20151119

REACTIONS (3)
  - Dyspnoea [Unknown]
  - Hypoxia [Fatal]
  - Pulmonary oedema [Unknown]
